FAERS Safety Report 10203342 (Version 1)
Quarter: 2014Q2

REPORT INFORMATION
  Report Type: Spontaneous
  Country: FR (occurrence: FR)
  Receive Date: 20140529
  Receipt Date: 20140529
  Transmission Date: 20141212
  Serious: Yes (Other)
  Sender: FDA-Public Use
  Company Number: PHHY2014FR063348

PATIENT
  Sex: Male

DRUGS (17)
  1. GLIVEC [Suspect]
     Indication: CHRONIC MYELOID LEUKAEMIA
     Dosage: UNK UKN, UNK
     Dates: start: 200410, end: 200704
  2. LASILIX [Concomitant]
     Dosage: UNK UKN, UNK
  3. DETENSIEL [Concomitant]
     Dosage: UNK UKN, UNK
  4. DIFFU K [Concomitant]
     Dosage: UNK UKN, UNK
  5. TRIATEC [Concomitant]
     Dosage: UNK UKN, UNK
  6. INEGY [Concomitant]
     Dosage: UNK UKN, UNK
  7. ZYLORIC [Concomitant]
     Dosage: UNK UKN, UNK
  8. JOSIR [Concomitant]
     Dosage: UNK UKN, UNK
  9. HEXAQUINE [Concomitant]
     Dosage: UNK UKN, UNK
  10. MOVICOL [Concomitant]
     Dosage: UNK UKN, UNK
  11. CLOPIDOGREL [Concomitant]
     Dosage: UNK UKN, UNK
  12. DOLIPRANE [Concomitant]
     Dosage: UNK UKN, UNK
  13. KARDEGIC [Concomitant]
     Dosage: UNK UKN, UNK
  14. CALCIPARINE [Concomitant]
     Dosage: UNK UKN, UNK
  15. FORLAX [Concomitant]
     Dosage: UNK UKN, UNK
  16. TRANSIPEG//MACROGOL [Concomitant]
     Dosage: UNK UKN, UNK
  17. LYRICA [Concomitant]
     Dosage: UNK UKN, UNK

REACTIONS (2)
  - Arteritis [Not Recovered/Not Resolved]
  - Thrombosis [Recovered/Resolved]
